FAERS Safety Report 4295374-9 (Version None)
Quarter: 2004Q1

REPORT INFORMATION
  Report Type: 
  Country: None (occurrence: None)
  Receive Date: 20040216
  Receipt Date: 20030707
  Transmission Date: 20041129
  Serious: No
  Sender: FDA-Public Use
  Company Number: US-GLAXOSMITHKLINE-A0415767A

PATIENT
  Age: 30 Year
  Sex: Female

DRUGS (2)
  1. LAMICTAL [Suspect]
     Indication: EPILEPSY
     Dosage: 50MG PER DAY
     Route: 048
     Dates: start: 20030702
  2. TOPAMAX [Concomitant]
     Dosage: 50MG AT NIGHT
     Route: 065
     Dates: start: 20030703

REACTIONS (2)
  - DIZZINESS [None]
  - HEAT RASH [None]
